FAERS Safety Report 25596366 (Version 2)
Quarter: 2025Q4

REPORT INFORMATION
  Report Type: Spontaneous
  Country: GB (occurrence: GB)
  Receive Date: 20250723
  Receipt Date: 20251106
  Transmission Date: 20260118
  Serious: Yes (Other)
  Sender: HIKMA
  Company Number: GB-BIOVITRUM-2025-GB-009246

PATIENT
  Age: 19 Month
  Sex: Female

DRUGS (33)
  1. CYCLOSPORINE [Suspect]
     Active Substance: CYCLOSPORINE
     Indication: Haemophagocytic lymphohistiocytosis
     Dosage: 3 MILLIGRAM/KILOGRAM, BID (HIGH DOSE)
     Route: 048
     Dates: start: 20250626
  2. DEXAMETHASONE [Suspect]
     Active Substance: DEXAMETHASONE
     Dosage: 10 MILLIGRAM/SQ. METER, BID (DOSE SPLIT INTO TWICE A DAY DOSING)
     Route: 048
     Dates: start: 20250522
  3. DEXAMETHASONE [Suspect]
     Active Substance: DEXAMETHASONE
     Dosage: 10 MILLIGRAM/SQ. METER (BACK TO 10 MG/M2 DUE TO RETURN OF FEVERS)
     Route: 065
     Dates: start: 20250624
  4. DEXAMETHASONE [Suspect]
     Active Substance: DEXAMETHASONE
     Indication: Haemophagocytic lymphohistiocytosis
     Dosage: 10 MILLIGRAM/SQ. METER (TO VARYING DOSES SINCE AROUND 16-MAY-2025)
     Route: 065
  5. DEXAMETHASONE [Suspect]
     Active Substance: DEXAMETHASONE
     Dosage: 5 MILLIGRAM/SQ. METER (OWN TO 5MG/M2 IN VIEW OF RISE IN EBV/ADV)
     Route: 065
     Dates: start: 20250630
  6. DEXAMETHASONE [Suspect]
     Active Substance: DEXAMETHASONE
     Dosage: 5 MILLIGRAM/SQ. METER (WEANED TO 5MG/M2 DUE TO RAISING ADV)
     Route: 065
     Dates: start: 20250529, end: 20250619
  7. ETOPOSIDE [Suspect]
     Active Substance: ETOPOSIDE
     Indication: Haemophagocytic lymphohistiocytosis
     Dosage: 150 MILLIGRAM/SQ. METER (INITIALLY TWICE A WEEK FOR 4 DOSES, THEN EVERY 2 WEEKS)
     Route: 042
     Dates: start: 20250604
  8. ETOPOSIDE [Suspect]
     Active Substance: ETOPOSIDE
     Dosage: UNK
     Route: 065
     Dates: start: 20250609
  9. ETOPOSIDE [Suspect]
     Active Substance: ETOPOSIDE
     Dosage: UNK
     Route: 065
     Dates: start: 20250613
  10. ETOPOSIDE [Suspect]
     Active Substance: ETOPOSIDE
     Dosage: UNK
     Route: 065
     Dates: start: 20250617
  11. ETOPOSIDE [Suspect]
     Active Substance: ETOPOSIDE
     Dosage: UNK
     Route: 065
     Dates: start: 20250629
  12. ETOPOSIDE [Suspect]
     Active Substance: ETOPOSIDE
     Dosage: UNK
     Route: 065
     Dates: start: 20250719
  13. GAMIFANT [Suspect]
     Active Substance: EMAPALUMAB-LZSG
     Indication: Haemophagocytic lymphohistiocytosis
     Dosage: 1 MILLIGRAM/KILOGRAM
     Route: 065
     Dates: start: 20250713
  14. IMMUNE GLOBULIN NOS [Suspect]
     Active Substance: IMMUNE GLOBULIN NOS
     Indication: Cytopenia
     Dosage: 0.5 GRAM PER KILOGRAM
     Route: 042
  15. IMMUNE GLOBULIN NOS [Suspect]
     Active Substance: IMMUNE GLOBULIN NOS
     Indication: Haemophagocytic lymphohistiocytosis
     Dosage: 1 GRAM PER KILOGRAM, SINGLE (HIGH DOSE, ONCE ONLY)
     Route: 042
     Dates: start: 20250630
  16. IMMUNE GLOBULIN NOS [Suspect]
     Active Substance: IMMUNE GLOBULIN NOS
     Indication: Pyrexia
     Dosage: UNK
     Route: 042
  17. KINERET [Suspect]
     Active Substance: ANAKINRA
     Indication: Haemophagocytic lymphohistiocytosis
     Dosage: 1 MONTH OF TREATMENT AT 10MG/KG/DAY
     Route: 058
     Dates: start: 20250516, end: 20250610
  18. METHYLPREDNISOLONE [Suspect]
     Active Substance: METHYLPREDNISOLONE
     Indication: Haemophagocytic lymphohistiocytosis
     Dosage: PULSE DOSES
     Route: 065
     Dates: start: 20250515
  19. METHYLPREDNISOLONE [Suspect]
     Active Substance: METHYLPREDNISOLONE
     Dosage: PULSE DOSES
     Route: 065
     Dates: start: 20250516
  20. METHYLPREDNISOLONE [Suspect]
     Active Substance: METHYLPREDNISOLONE
     Dosage: PULSE DOSES
     Route: 065
     Dates: start: 20250517
  21. METHYLPREDNISOLONE [Suspect]
     Active Substance: METHYLPREDNISOLONE
     Dosage: PULSE DOSES
     Route: 065
     Dates: start: 20250526
  22. METHYLPREDNISOLONE [Suspect]
     Active Substance: METHYLPREDNISOLONE
     Dosage: PULSE DOSES
     Route: 065
     Dates: start: 20250527
  23. METHYLPREDNISOLONE [Suspect]
     Active Substance: METHYLPREDNISOLONE
     Dosage: PULSE DOSES
     Route: 065
     Dates: start: 20250528
  24. PREDNISOLONE [Suspect]
     Active Substance: PREDNISOLONE
     Indication: Haemophagocytic lymphohistiocytosis
     Dosage: UNK
     Route: 065
     Dates: start: 20250519
  25. PREDNISOLONE [Suspect]
     Active Substance: PREDNISOLONE
     Dosage: UNK
     Route: 065
     Dates: start: 20250520
  26. PREDNISOLONE [Suspect]
     Active Substance: PREDNISOLONE
     Dosage: UNK
     Route: 065
     Dates: start: 20250521
  27. RITUXIMAB [Suspect]
     Active Substance: RITUXIMAB
     Indication: Epstein-Barr virus infection
     Dosage: UNK, QID (4 TIMES DAILY)
     Route: 065
     Dates: start: 20250626
  28. RITUXIMAB [Suspect]
     Active Substance: RITUXIMAB
     Indication: Haemophagocytic lymphohistiocytosis
     Dosage: UNK, QID (4 TIMES DAILY)
     Route: 065
     Dates: start: 20250606
  29. AMBISOME [Concomitant]
     Active Substance: AMPHOTERICIN B
     Indication: Pyrexia
     Dosage: 1 MILLIGRAM/KILOGRAM, SINGLE
     Route: 065
  30. AMBISOME [Concomitant]
     Active Substance: AMPHOTERICIN B
     Indication: Fungal infection
     Dosage: 3 MILLIGRAM/KILOGRAM, SINGLE
     Route: 065
  31. MEROPENEM [Concomitant]
     Active Substance: MEROPENEM
     Indication: Pyrexia
     Dosage: UNK
     Route: 065
  32. MEROPENEM [Concomitant]
     Active Substance: MEROPENEM
     Indication: Lymphopenia
  33. MEROPENEM [Concomitant]
     Active Substance: MEROPENEM
     Indication: Haemophagocytic lymphohistiocytosis

REACTIONS (4)
  - Adenovirus infection [Unknown]
  - Epstein-Barr virus infection [Unknown]
  - Haemophagocytic lymphohistiocytosis [Recovering/Resolving]
  - Condition aggravated [Recovering/Resolving]

NARRATIVE: CASE EVENT DATE: 20250610
